FAERS Safety Report 5501417-4 (Version None)
Quarter: 2007Q3

REPORT INFORMATION
  Report Type: 
  Country: None (occurrence: None)
  Receive Date: 20070928
  Receipt Date: 20070928
  Transmission Date: 20080115
  Serious: No
  Sender: FDA-Public Use
  Company Number: None

PATIENT
  Age: 54 Year
  Sex: Female
  Weight: 54.4316 kg

DRUGS (4)
  1. BANANA BOAT SPF4 [Suspect]
     Indication: TANNING
     Dosage: SPRAYED AND RUBBED 1-3 TIMES PER DAY TOP
     Route: 061
     Dates: start: 20070915, end: 20070916
  2. SOLARCANE [Concomitant]
  3. BENADRYL CREAM [Concomitant]
  4. CLARITIN [Concomitant]

REACTIONS (3)
  - APPLICATION SITE VESICLES [None]
  - PHOTOSENSITIVITY REACTION [None]
  - SKIN EXFOLIATION [None]
